FAERS Safety Report 4459013-6 (Version None)
Quarter: 2004Q3

REPORT INFORMATION
  Report Type: 
  Country: None (occurrence: None)
  Receive Date: 20040927
  Receipt Date: 20030912
  Transmission Date: 20050211
  Serious: Yes (Life-Threatening, Hospitalization)
  Sender: FDA-Public Use
  Company Number: US-BRISTOL-MYERS SQUIBB COMPANY-12381026

PATIENT
  Age: 73 Year
  Sex: Female

DRUGS (5)
  1. TREXAN (ORION) [Suspect]
     Indication: RHEUMATOID ARTHRITIS
     Route: 048
     Dates: start: 20021209, end: 20030323
  2. PREDNISOLONE [Concomitant]
     Indication: RHEUMATOID ARTHRITIS
     Route: 048
     Dates: start: 20021209
  3. IBUXIN [Concomitant]
     Route: 048
     Dates: start: 20021209
  4. FLAGYL [Concomitant]
     Indication: VAGINITIS
     Dates: end: 20030325
  5. TROSYD [Concomitant]
     Indication: FUNGAL SKIN INFECTION
     Route: 061
     Dates: end: 20030325

REACTIONS (2)
  - DYSPNOEA [None]
  - LUNG INFILTRATION [None]
